FAERS Safety Report 10279385 (Version 1)
Quarter: 2014Q3

REPORT INFORMATION
  Report Type: Spontaneous
  Country: GB (occurrence: GB)
  Receive Date: 20140707
  Receipt Date: 20140707
  Transmission Date: 20150326
  Serious: Yes (Hospitalization)
  Sender: FDA-Public Use
  Company Number: PHFR2014GB004670

PATIENT
  Age: 50 Year
  Sex: Male

DRUGS (1)
  1. CLOZARIL [Suspect]
     Active Substance: CLOZAPINE
     Dosage: UNK UKN, UNK
     Route: 048
     Dates: start: 20080414

REACTIONS (4)
  - White blood cell count increased [Not Recovered/Not Resolved]
  - Abdominal pain [Unknown]
  - Neutrophil count increased [Not Recovered/Not Resolved]
  - Alcohol withdrawal syndrome [Unknown]

NARRATIVE: CASE EVENT DATE: 20140528
